FAERS Safety Report 12720238 (Version 2)
Quarter: 2016Q3

REPORT INFORMATION
  Report Type: Spontaneous
  Country: JP (occurrence: JP)
  Receive Date: 20160907
  Receipt Date: 20160929
  Transmission Date: 20161109
  Serious: Yes (Hospitalization)
  Sender: FDA-Public Use
  Company Number: JP-SA-2016SA162061

PATIENT
  Age: 75 Year
  Sex: Male

DRUGS (1)
  1. CLOPIDOGREL BISULFATE. [Suspect]
     Active Substance: CLOPIDOGREL BISULFATE
     Indication: CEREBRAL INFARCTION
     Route: 048

REACTIONS (12)
  - Nuclear magnetic resonance imaging brain abnormal [Recovered/Resolved]
  - Reticulocyte count increased [Recovered/Resolved]
  - Thrombotic thrombocytopenic purpura [Recovered/Resolved]
  - Hypoaesthesia [Recovered/Resolved]
  - Platelet count decreased [Recovered/Resolved]
  - Altered state of consciousness [Recovered/Resolved]
  - ADAMTS13 activity decreased [Recovered/Resolved]
  - Blood lactate dehydrogenase increased [Recovered/Resolved]
  - Dyslalia [Recovered/Resolved]
  - Monoplegia [Recovered/Resolved]
  - Haemoglobin decreased [Recovered/Resolved]
  - Haemolytic anaemia [Recovered/Resolved]
